FAERS Safety Report 11200267 (Version 5)
Quarter: 2016Q4

REPORT INFORMATION
  Report Type: Spontaneous
  Country: PT (occurrence: PT)
  Receive Date: 20150618
  Receipt Date: 20161130
  Transmission Date: 20170206
  Serious: Yes (Disabling, Other)
  Sender: FDA-Public Use
  Company Number: PT-GILEAD-2015-0158527

PATIENT
  Age: 60 Year
  Sex: Female
  Weight: 80 kg

DRUGS (27)
  1. JANUMET [Concomitant]
     Active Substance: METFORMIN HYDROCHLORIDE\SITAGLIPTIN PHOSPHATE
     Route: 048
  2. DIAMICRON [Concomitant]
     Active Substance: GLICLAZIDE
     Indication: TYPE 2 DIABETES MELLITUS
     Dosage: 60 MG, QD
     Route: 048
  3. VALPROATO SEMISODICO [Concomitant]
     Indication: BIPOLAR DISORDER
     Dosage: 1 DF, QD
     Route: 048
     Dates: start: 20140508
  4. JANUMET [Concomitant]
     Active Substance: METFORMIN HYDROCHLORIDE\SITAGLIPTIN PHOSPHATE
     Indication: TYPE 2 DIABETES MELLITUS
     Route: 048
  5. TOPAMAX [Concomitant]
     Active Substance: TOPIRAMATE
     Indication: BIPOLAR DISORDER
     Route: 048
  6. TOPAMAX [Concomitant]
     Active Substance: TOPIRAMATE
     Route: 048
  7. CLOZAPINA [Concomitant]
     Active Substance: CLOZAPINE
     Route: 048
  8. INVEGA [Concomitant]
     Active Substance: PALIPERIDONE
     Indication: BIPOLAR DISORDER
     Dosage: 3 MG, UNK
     Route: 048
     Dates: start: 20140508
  9. HARVONI [Suspect]
     Active Substance: LEDIPASVIR\SOFOSBUVIR
     Indication: HEPATITIS C
     Dosage: 1 DF, QD
     Route: 048
     Dates: start: 20150316
  10. OMEPRAZOL                          /00661201/ [Concomitant]
     Active Substance: OMEPRAZOLE
     Indication: GASTRIC ULCER
     Dosage: 20 MG, QD
     Route: 048
  11. SITAGLIPTINA [Concomitant]
     Indication: PRODUCT USED FOR UNKNOWN INDICATION
     Dosage: 50 MG, UNK
  12. TOPAMAX [Concomitant]
     Active Substance: TOPIRAMATE
     Route: 048
  13. CLOZAPINA [Concomitant]
     Active Substance: CLOZAPINE
     Indication: BIPOLAR DISORDER
     Route: 048
  14. COPEGUS [Interacting]
     Active Substance: RIBAVIRIN
     Indication: HEPATITIS C
     Dosage: REDU??O DE DOSE A 08-05-2015 PARA 800MG/DIA.
     Route: 048
     Dates: start: 20150316
  15. JANUMET [Concomitant]
     Active Substance: METFORMIN HYDROCHLORIDE\SITAGLIPTIN PHOSPHATE
     Route: 048
  16. CLOZAPINA [Concomitant]
     Active Substance: CLOZAPINE
     Route: 048
  17. ESCITALOPRAM [Concomitant]
     Active Substance: ESCITALOPRAM OXALATE
     Indication: PRODUCT USED FOR UNKNOWN INDICATION
     Route: 048
     Dates: start: 20140508
  18. VALSARTAN + HIDROCLOROTIAZIDA [Concomitant]
     Active Substance: HYDROCHLOROTHIAZIDE\VALSARTAN
     Indication: HYPERTENSION
     Route: 065
  19. VALSARTAN + HIDROCLOROTIAZIDA [Concomitant]
     Active Substance: HYDROCHLOROTHIAZIDE\VALSARTAN
     Route: 048
  20. TOPAMAX [Concomitant]
     Active Substance: TOPIRAMATE
     Route: 048
  21. CLOZAPINA [Concomitant]
     Active Substance: CLOZAPINE
     Route: 048
  22. LORAZEPAM. [Concomitant]
     Active Substance: LORAZEPAM
     Dosage: 1 DF, PRN
     Route: 048
     Dates: start: 20140508
  23. VALSARTAN + HIDROCLOROTIAZIDA [Concomitant]
     Active Substance: HYDROCHLOROTHIAZIDE\VALSARTAN
     Route: 048
  24. LORAZEPAM. [Concomitant]
     Active Substance: LORAZEPAM
     Indication: BIPOLAR DISORDER
     Dosage: 1 DF, PRN
     Route: 048
     Dates: start: 20140808
  25. COPEGUS [Interacting]
     Active Substance: RIBAVIRIN
     Dosage: 800 MG, QD
     Route: 065
     Dates: start: 20150508
  26. VALSARTAN + HIDROCLOROTIAZIDA [Concomitant]
     Active Substance: HYDROCHLOROTHIAZIDE\VALSARTAN
     Route: 048
  27. ESCITALOPRAM [Concomitant]
     Active Substance: ESCITALOPRAM OXALATE
     Indication: BIPOLAR DISORDER

REACTIONS (6)
  - Anaemia [Recovered/Resolved]
  - Fatigue [Recovered/Resolved]
  - Somnolence [Unknown]
  - Presyncope [Unknown]
  - Drug interaction [Unknown]
  - Decreased appetite [Unknown]

NARRATIVE: CASE EVENT DATE: 201503
